FAERS Safety Report 6292527-5 (Version None)
Quarter: 2009Q3

REPORT INFORMATION
  Report Type: 
  Country: None (occurrence: None)
  Receive Date: 20090731
  Receipt Date: 20090723
  Transmission Date: 20100115
  Serious: Yes (Hospitalization)
  Sender: FDA-Public Use
  Company Number: US-ASTRAZENECA-2009SE06001

PATIENT
  Age: 80 Year
  Sex: Female

DRUGS (11)
  1. ARIMIDEX [Suspect]
     Indication: BREAST CANCER
     Route: 048
  2. ATACAND [Suspect]
     Indication: CARDIAC DISORDER
     Route: 048
  3. AMIODARONE [Concomitant]
  4. CALCIUM [Concomitant]
  5. M.V.I. [Concomitant]
  6. COQ10 [Concomitant]
  7. DIGOXIN [Concomitant]
  8. FUROSEMIDE [Concomitant]
  9. LEVOTHYROXINE SODIUM [Concomitant]
  10. LIPITOR [Concomitant]
  11. ALENDRONATE SODIUM [Concomitant]

REACTIONS (2)
  - MUSCLE SPASMS [None]
  - URINARY TRACT INFECTION [None]
